FAERS Safety Report 7469510-7 (Version None)
Quarter: 2011Q2

REPORT INFORMATION
  Report Type: 
  Country: None (occurrence: None)
  Receive Date: 20110429
  Receipt Date: 20110412
  Transmission Date: 20111010
  Serious: Yes (Other)
  Sender: FDA-Public Use
  Company Number: 031739

PATIENT
  Sex: Female

DRUGS (2)
  1. LAMICTAL [Suspect]
     Indication: CONVULSION
     Dosage: 225 MG BID, STARTED ABOUT AN YEAR AGO, ORAL
     Route: 048
  2. KEPPRA [Suspect]
     Indication: CONVULSION
     Dosage: 1500 MG BID, ORAL
     Route: 048

REACTIONS (7)
  - BALANCE DISORDER [None]
  - ABASIA [None]
  - DYSARTHRIA [None]
  - HEADACHE [None]
  - GAIT DISTURBANCE [None]
  - EXPIRED DRUG ADMINISTERED [None]
  - MENTAL IMPAIRMENT [None]
